FAERS Safety Report 10418066 (Version 3)
Quarter: 2014Q3

REPORT INFORMATION
  Report Type: Spontaneous
  Country: US (occurrence: US)
  Receive Date: 20140829
  Receipt Date: 20140930
  Transmission Date: 20150326
  Serious: Yes (Other)
  Sender: FDA-Public Use
  Company Number: US-SA-2014SA113997

PATIENT
  Age: 53 Year
  Sex: Male

DRUGS (6)
  1. APIDRA SOLOSTAR [Suspect]
     Active Substance: INSULIN GLULISINE
     Indication: DIABETES MELLITUS
     Dosage: DOSE : VARIES?FREQUENCY: MEALTIMES
     Route: 065
  2. SOLOSTAR [Suspect]
     Active Substance: DEVICE
     Indication: DIABETES MELLITUS
     Dosage: FREQUENCY: MEALTIMES
  3. APIDRA SOLOSTAR [Suspect]
     Active Substance: INSULIN GLULISINE
     Indication: DIABETES MELLITUS
     Dosage: DOSE : VARIES?FREQUENCY: MEALTIMES
     Route: 065
  4. SOLOSTAR [Suspect]
     Active Substance: DEVICE
     Indication: DIABETES MELLITUS
     Dosage: FREQUENCY: MEALTIMES
  5. APIDRA SOLOSTAR [Suspect]
     Active Substance: INSULIN GLULISINE
     Indication: DIABETES MELLITUS
     Dosage: DOSE : VARIES?FREQUENCY: MEALTIMES
     Route: 065
  6. SOLOSTAR [Suspect]
     Active Substance: DEVICE
     Indication: DIABETES MELLITUS
     Dosage: FREQUENCY: MEALTIMES

REACTIONS (6)
  - Lung disorder [Unknown]
  - Blood glucose abnormal [Unknown]
  - Coronary artery bypass [Unknown]
  - Blood testosterone decreased [Unknown]
  - Oxygen saturation decreased [Unknown]
  - Blood glucose increased [Unknown]
